FAERS Safety Report 9782490 (Version 1)
Quarter: 2013Q4

REPORT INFORMATION
  Report Type: Spontaneous
  Country: US (occurrence: US)
  Receive Date: 20131226
  Receipt Date: 20131226
  Transmission Date: 20140711
  Serious: Yes (Other)
  Sender: FDA-Public Use
  Company Number: US-SA-2013SA134758

PATIENT
  Sex: Male

DRUGS (8)
  1. LANTUS SOLOSTAR [Suspect]
     Route: 051
     Dates: start: 2003
  2. LANTUS SOLOSTAR [Suspect]
     Dosage: DOSE:50 UNIT(S)
     Route: 051
     Dates: start: 2005
  3. LANTUS SOLOSTAR [Suspect]
     Dosage: DOSE:75 UNIT(S)
     Route: 051
  4. HUMALOG [Suspect]
     Dosage: 2005 HE WAS PRESCRIBED 15 UNITS HUMALOG AT MEALTIMES DOSE:15 UNIT(S)
     Route: 065
  5. NOVOLOG [Suspect]
     Dosage: DOSE:30 UNIT(S)
     Route: 065
  6. SOLOSTAR [Concomitant]
     Dates: start: 2003
  7. SOLOSTAR [Concomitant]
     Dates: start: 2005
  8. SOLOSTAR [Concomitant]

REACTIONS (11)
  - Cardiac disorder [Unknown]
  - Ejection fraction decreased [Unknown]
  - Grand mal convulsion [Unknown]
  - Blindness [Unknown]
  - Eye haemorrhage [Unknown]
  - Diabetic complication [Unknown]
  - Eye haemorrhage [Unknown]
  - Eye disorder [Unknown]
  - Visual field defect [Unknown]
  - Retinal injury [Unknown]
  - Visual impairment [Unknown]
